FAERS Safety Report 7283633-7 (Version None)
Quarter: 2011Q1

REPORT INFORMATION
  Report Type: 
  Country: None (occurrence: None)
  Receive Date: 20110209
  Receipt Date: 20110131
  Transmission Date: 20110831
  Serious: Yes (Death, Life-Threatening, Hospitalization)
  Sender: FDA-Public Use
  Company Number: B0698599A

PATIENT
  Age: 65 Year
  Sex: Female

DRUGS (1)
  1. ARIXTRA [Suspect]
     Indication: GASTRECTOMY
     Dosage: 2.5MG PER DAY
     Route: 065
     Dates: start: 20110116, end: 20110122

REACTIONS (1)
  - GASTROINTESTINAL HAEMORRHAGE [None]
